FAERS Safety Report 7205879-6 (Version None)
Quarter: 2010Q4

REPORT INFORMATION
  Report Type: 
  Country: None (occurrence: None)
  Receive Date: 20101231
  Receipt Date: 20101221
  Transmission Date: 20110411
  Serious: Yes (Life-Threatening, Hospitalization)
  Sender: FDA-Public Use
  Company Number: US-CELGENEUS-163-22393-10080373

PATIENT
  Sex: Female

DRUGS (1)
  1. ISTODAX [Suspect]
     Route: 051

REACTIONS (1)
  - MYOCARDIAL INFARCTION [None]
